FAERS Safety Report 8987540 (Version 1)
Quarter: 2012Q4

REPORT INFORMATION
  Report Type: Report from Study
  Country: US (occurrence: US)
  Receive Date: 20121227
  Receipt Date: 20121227
  Transmission Date: 20130627
  Serious: Yes (Other)
  Sender: FDA-Public Use
  Company Number: US-ABBOTT-12P-163-1023387-00

PATIENT
  Sex: Female

DRUGS (2)
  1. HUMIRA [Suspect]
     Indication: RHEUMATOID ARTHRITIS
     Route: 058
     Dates: start: 201109
  2. CARISOPRODOL [Suspect]
     Indication: MUSCLE RELAXANT THERAPY

REACTIONS (19)
  - Trigger finger [Recovered/Resolved]
  - Trigger finger [Recovered/Resolved]
  - Dupuytren^s contracture [Recovered/Resolved]
  - Road traffic accident [Recovering/Resolving]
  - Injection site pain [Not Recovered/Not Resolved]
  - Thermal burn [Recovered/Resolved]
  - Laceration [Recovered/Resolved]
  - Oedema peripheral [Recovered/Resolved]
  - Contusion [Recovering/Resolving]
  - Arthralgia [Not Recovered/Not Resolved]
  - Contusion [Recovered/Resolved]
  - Contusion [Not Recovered/Not Resolved]
  - Dizziness [Recovered/Resolved]
  - Headache [Recovered/Resolved]
  - Nausea [Recovered/Resolved]
  - Vomiting [Recovered/Resolved]
  - Respiration abnormal [Recovered/Resolved]
  - Pain [Recovering/Resolving]
  - Disturbance in attention [Not Recovered/Not Resolved]
